FAERS Safety Report 7342976-9 (Version None)
Quarter: 2011Q1

REPORT INFORMATION
  Report Type: 
  Country: None (occurrence: None)
  Receive Date: 20110310
  Receipt Date: 20110225
  Transmission Date: 20110831
  Serious: Yes (Hospitalization)
  Sender: FDA-Public Use
  Company Number: PHHY2011US18106

PATIENT
  Sex: Female
  Weight: 59 kg

DRUGS (1)
  1. EXJADE [Suspect]
     Dosage: 875 MG, QD
     Route: 048
     Dates: start: 20100801, end: 20101201

REACTIONS (3)
  - PNEUMONIA [None]
  - HYPOXIA [None]
  - MENTAL IMPAIRMENT [None]
